FAERS Safety Report 25907833 (Version 1)
Quarter: 2025Q4

REPORT INFORMATION
  Report Type: Spontaneous
  Country: US (occurrence: US)
  Receive Date: 20251010
  Receipt Date: 20251010
  Transmission Date: 20260117
  Serious: Yes (Life-Threatening, Hospitalization, Other)
  Sender: GLAND PHARMA LTD
  Company Number: US-GLANDPHARMA-US-2025GLNSPO01943

PATIENT
  Sex: Male

DRUGS (3)
  1. MELPHALAN HYDROCHLORIDE [Suspect]
     Active Substance: MELPHALAN HYDROCHLORIDE
     Indication: Myelodysplastic syndrome
     Dosage: 3 ROUNDS OF CHEMO
     Route: 065
  2. THIOTEPA [Suspect]
     Active Substance: THIOTEPA
     Indication: Myelodysplastic syndrome
     Dosage: 3 ROUNDS
     Route: 065
  3. FLUDARABINE [Suspect]
     Active Substance: FLUDARABINE PHOSPHATE
     Indication: Myelodysplastic syndrome
     Dosage: 3 ROUNDS
     Route: 065

REACTIONS (16)
  - Epistaxis [Unknown]
  - Platelet count decreased [Unknown]
  - Clostridium difficile colitis [Unknown]
  - Liver injury [Unknown]
  - Acute kidney injury [Unknown]
  - Pneumonia [Unknown]
  - Illness [Unknown]
  - Abdominal pain upper [Unknown]
  - Hypervolaemia [Unknown]
  - Trismus [Unknown]
  - Mucosal inflammation [Unknown]
  - Oral pain [Unknown]
  - Venoocclusive disease [Unknown]
  - Diarrhoea [Unknown]
  - Pyrexia [Unknown]
  - Product use in unapproved indication [Unknown]
